FAERS Safety Report 8042968-0 (Version None)
Quarter: 2012Q1

REPORT INFORMATION
  Report Type: 
  Country: None (occurrence: None)
  Receive Date: 20120112
  Receipt Date: 20120103
  Transmission Date: 20120608
  Serious: Yes (Hospitalization, Other)
  Sender: FDA-Public Use
  Company Number: PHEH2011US03826

PATIENT
  Sex: Male
  Weight: 129 kg

DRUGS (11)
  1. FISH OIL POTENCY [Concomitant]
  2. EXJADE [Suspect]
     Indication: MYELODYSPLASTIC SYNDROME
     Dosage: 2500 MG, QD
     Route: 048
  3. ACETAMINOPHEN AND HYDROCODONE BITARTRATE [Concomitant]
  4. SIMVASTATIN [Concomitant]
  5. HYDROXYZINE [Concomitant]
  6. ASPIRIN ^BAYER^ DELAYED RELEASE [Concomitant]
  7. ALLOPURINOL [Concomitant]
  8. EXJADE [Suspect]
     Indication: HAEMOCHROMATOSIS
     Dosage: 2000 MG, DAILY
     Route: 048
     Dates: start: 20110817
  9. LASIX [Concomitant]
  10. ACTOS [Concomitant]
  11. NEURONTIN [Concomitant]

REACTIONS (17)
  - OXYGEN SATURATION INCREASED [None]
  - RENAL FAILURE CHRONIC [None]
  - ANAEMIA [None]
  - BLOOD UREA INCREASED [None]
  - MONOCYTE COUNT INCREASED [None]
  - EOSINOPHIL COUNT INCREASED [None]
  - HAEMATOCRIT DECREASED [None]
  - BLOOD GLUCOSE INCREASED [None]
  - MEAN CELL VOLUME INCREASED [None]
  - BLOOD CREATININE INCREASED [None]
  - BASOPHIL COUNT INCREASED [None]
  - HAEMOGLOBIN DECREASED [None]
  - MEAN CELL HAEMOGLOBIN CONCENTRATION DECREASED [None]
  - NEUTROPHIL COUNT DECREASED [None]
  - PLATELET COUNT DECREASED [None]
  - RED BLOOD CELL COUNT DECREASED [None]
  - DEHYDRATION [None]
